FAERS Safety Report 7475884-3 (Version None)
Quarter: 2011Q2

REPORT INFORMATION
  Report Type: 
  Country: None (occurrence: None)
  Receive Date: 20110512
  Receipt Date: 20110510
  Transmission Date: 20111010
  Serious: Yes (Other)
  Sender: FDA-Public Use
  Company Number: A0926748A

PATIENT
  Age: 41 Year
  Sex: Female

DRUGS (1)
  1. ALLI [Suspect]
     Route: 048
     Dates: start: 20110509, end: 20110510

REACTIONS (3)
  - CHEST DISCOMFORT [None]
  - MYOCARDIAL INFARCTION [None]
  - MALAISE [None]
